FAERS Safety Report 11216003 (Version 3)
Quarter: 2015Q3

REPORT INFORMATION
  Report Type: Spontaneous
  Country: US (occurrence: US)
  Receive Date: 20150624
  Receipt Date: 20150723
  Transmission Date: 20151125
  Serious: Yes (Hospitalization)
  Sender: FDA-Public Use
  Company Number: US-ACTELION-A-US2015-119910

PATIENT
  Age: 45 Year
  Sex: Female

DRUGS (2)
  1. VELETRI [Suspect]
     Active Substance: EPOPROSTENOL
     Indication: PULMONARY ARTERIAL HYPERTENSION
     Dosage: 17.42 NG/KG, PER MIN
     Route: 042
     Dates: start: 20111019
  2. LETAIRIS [Concomitant]
     Active Substance: AMBRISENTAN

REACTIONS (6)
  - Staphylococcus test positive [Unknown]
  - Catheter site infection [Unknown]
  - Staphylococcal infection [Unknown]
  - Blood culture negative [Unknown]
  - Catheter site inflammation [Unknown]
  - Chills [Unknown]
